FAERS Safety Report 9108234 (Version 1)
Quarter: 2013Q1

REPORT INFORMATION
  Report Type: Spontaneous
  Country: JP (occurrence: JP)
  Receive Date: 20130222
  Receipt Date: 20130222
  Transmission Date: 20140127
  Serious: Yes (Hospitalization, Disabling, Other)
  Sender: FDA-Public Use
  Company Number: JP-MILLENNIUM PHARMACEUTICALS, INC.-2013-01325

PATIENT
  Sex: 0

DRUGS (4)
  1. VELCADE [Suspect]
     Indication: PLASMA CELL MYELOMA
     Dosage: 1.3 MG/M2, CYCLIC
     Route: 042
  2. DEXAMETHASONE [Suspect]
     Indication: PLASMA CELL MYELOMA
     Dosage: 20 MG, UNK
     Route: 048
  3. DEXAMETHASONE [Suspect]
     Dosage: 40 MG, CYCLIC
     Route: 048
  4. LENALIDOMIDE [Suspect]
     Indication: PLASMA CELL MYELOMA
     Dosage: 25 MG, CYCLIC
     Route: 048

REACTIONS (4)
  - Infection [Unknown]
  - Pain in extremity [Not Recovered/Not Resolved]
  - Febrile neutropenia [Unknown]
  - Plasma cell myeloma [Not Recovered/Not Resolved]
